FAERS Safety Report 26043489 (Version 1)
Quarter: 2025Q4

REPORT INFORMATION
  Report Type: Report from Study
  Country: CO (occurrence: CO)
  Receive Date: 20251113
  Receipt Date: 20251113
  Transmission Date: 20260117
  Serious: Yes (Hospitalization)
  Sender: ABBVIE
  Company Number: CO-JNJFOC-20251148217

PATIENT
  Age: 83 Year
  Sex: Male
  Weight: 53 kg

DRUGS (1)
  1. IMBRUVICA [Suspect]
     Active Substance: IBRUTINIB
     Indication: Chronic lymphocytic leukaemia
     Dosage: LAST DOSE OF TREATMENT: 28-OCT-2025
     Route: 048
     Dates: start: 20251028

REACTIONS (1)
  - Intensive care [Unknown]

NARRATIVE: CASE EVENT DATE: 20251028
